FAERS Safety Report 11024713 (Version 1)
Quarter: 2015Q2

REPORT INFORMATION
  Report Type: Spontaneous
  Country: None (occurrence: None)
  Receive Date: 20150413
  Receipt Date: 20150413
  Transmission Date: 20150821
  Serious: Yes (Hospitalization, Other)
  Sender: FDA-Public Use
  Company Number: None

PATIENT
  Age: 57 Year
  Sex: Male
  Weight: 99.79 kg

DRUGS (16)
  1. METFORMIN HCL [Concomitant]
     Active Substance: METFORMIN HYDROCHLORIDE
  2. ASPIRIN. [Concomitant]
     Active Substance: ASPIRIN
  3. LANCET, SOFTCLIX [Concomitant]
  4. NAPROXEN. [Suspect]
     Active Substance: NAPROXEN
     Indication: PAIN
     Dosage: 3-4 PILLS
     Route: 048
     Dates: start: 20141222, end: 20150105
  5. FERROUS SULFATE [Concomitant]
     Active Substance: FERROUS SULFATE\FERROUS SULFATE, DRIED
  6. FISH OIL [Concomitant]
     Active Substance: FISH OIL
  7. INSULIN SYRINGE [Concomitant]
  8. SILDENAFIL CITRATE. [Concomitant]
     Active Substance: SILDENAFIL CITRATE
  9. ACCU-CHEK AVIVA PLUS (GLUCOSE) [Concomitant]
  10. ALBUTEROL. [Concomitant]
     Active Substance: ALBUTEROL
  11. METOPROLOL TARTRATE. [Concomitant]
     Active Substance: METOPROLOL TARTRATE
  12. ALCOHOL PREP PADS (EA) [Concomitant]
  13. SIMVASTATIN. [Concomitant]
     Active Substance: SIMVASTATIN
  14. ACETAMINOPHEN. [Concomitant]
     Active Substance: ACETAMINOPHEN
  15. INSULIN, GLARGINE, HUMAN [Concomitant]
  16. MELOXICAM. [Concomitant]
     Active Substance: MELOXICAM

REACTIONS (3)
  - Dizziness [None]
  - Faeces discoloured [None]
  - Vomiting [None]

NARRATIVE: CASE EVENT DATE: 20150105
